FAERS Safety Report 7717011-0 (Version None)
Quarter: 2011Q3

REPORT INFORMATION
  Report Type: 
  Country: None (occurrence: None)
  Receive Date: 20110829
  Receipt Date: 20110822
  Transmission Date: 20111222
  Serious: Yes (Other)
  Sender: FDA-Public Use
  Company Number: AU-GILEAD-E2B_00001349

PATIENT
  Sex: Female
  Weight: 64 kg

DRUGS (11)
  1. UNKNOWN [Concomitant]
  2. TRACLEER [Concomitant]
  3. METOCLOPRAMIDE [Concomitant]
  4. OMEPRAZOLE [Concomitant]
  5. PLAQUENIL [Concomitant]
  6. AMBRISENTAN [Suspect]
     Indication: PULMONARY HYPERTENSION
     Route: 065
     Dates: start: 20110524, end: 20110527
  7. FUROSEMIDE [Concomitant]
  8. AUGMENTIN DUO FORTE [Concomitant]
  9. RANITIDINE HYDROCHLORIDE [Concomitant]
  10. MS CONTIN [Concomitant]
  11. LEVOTHYROXINE SODIUM [Concomitant]

REACTIONS (6)
  - HEADACHE [None]
  - FLUSHING [None]
  - GAMMA-GLUTAMYLTRANSFERASE INCREASED [None]
  - ALANINE AMINOTRANSFERASE INCREASED [None]
  - ASPARTATE AMINOTRANSFERASE [None]
  - THERMAL BURN [None]
